FAERS Safety Report 5372814-5 (Version None)
Quarter: 2007Q2

REPORT INFORMATION
  Report Type: 
  Country: None (occurrence: None)
  Receive Date: 20070627
  Receipt Date: 20070615
  Transmission Date: 20071010
  Serious: Yes (Life-Threatening, Hospitalization)
  Sender: FDA-Public Use
  Company Number: IN-PFIZER INC-2007050148

PATIENT
  Sex: Female

DRUGS (4)
  1. DOXORUBICIN HCL [Suspect]
     Indication: BREAST CANCER
     Dates: start: 20070524
  2. CYCLOPHOSPHAMIDE [Suspect]
     Indication: BREAST CANCER
  3. FLUOROURACIL [Suspect]
     Indication: BREAST CANCER
  4. TRIPTORELIN [Suspect]
     Indication: BREAST CANCER
     Dosage: DAILY DOSE:3.75MG-FREQ:EVERY 4 WEEKS
     Route: 030

REACTIONS (1)
  - CEREBROVASCULAR ACCIDENT [None]
